FAERS Safety Report 5650595-5 (Version None)
Quarter: 2008Q1

REPORT INFORMATION
  Report Type: 
  Country: None (occurrence: None)
  Receive Date: 20080303
  Receipt Date: 20080225
  Transmission Date: 20080703
  Serious: Yes (Life-Threatening)
  Sender: FDA-Public Use
  Company Number: GXKR2008DE01894

PATIENT
  Age: 56 Year
  Sex: Female

DRUGS (6)
  1. DICLAC (NGX)(DICLOFENAC) DISPERSIBLE TABLET, 50MG [Suspect]
     Indication: ARTHRITIS
     Dosage: 50 MG, BID, ORAL
     Route: 048
     Dates: start: 20041216
  2. LEVOTHYROXINE SODIUM [Suspect]
     Dosage: 200 UG, QD, ORAL
     Route: 048
     Dates: start: 20030501
  3. ALLOPURINOL [Suspect]
     Dosage: 300 MG, QD, ORAL
     Route: 048
     Dates: start: 20041125
  4. ZOLPIDEM [Suspect]
     Dosage: 10 MG, QD, ORAL
     Route: 048
     Dates: start: 20041201
  5. GLUCOPHAGE [Suspect]
     Indication: DIABETES MELLITUS
     Dosage: 500 MG-500 MG-250 MG / DAILY, ORAL
     Route: 048
     Dates: start: 20030601
  6. PARACETAMOL COMP. ^STADA^(CODEINE PHOSPHATE HEMIHYDRATE, PARACETAMOL) [Suspect]
     Indication: PAIN
     Dosage: ORAL
     Route: 048
     Dates: start: 20041115

REACTIONS (2)
  - NASOPHARYNGITIS [None]
  - TOXIC EPIDERMAL NECROLYSIS [None]
